FAERS Safety Report 4863064-7 (Version None)
Quarter: 2005Q4

REPORT INFORMATION
  Report Type: 
  Country: None (occurrence: None)
  Receive Date: 20051219
  Receipt Date: 20051212
  Transmission Date: 20060501
  Serious: Yes (Life-Threatening, Hospitalization)
  Sender: FDA-Public Use
  Company Number: 2005-11-0982

PATIENT
  Age: 43 Year
  Sex: Female

DRUGS (3)
  1. PEG-INTRON [Suspect]
     Indication: HEPATITIS C
     Dosage: 120 MCG SUBCUTANEOUS
     Route: 058
     Dates: start: 20040415, end: 20040419
  2. INTRON A [Suspect]
     Indication: HEPATITIS C
     Dosage: 3 MU TIW
     Dates: start: 20020115, end: 20020124
  3. RIBAVIRIN [Suspect]
     Indication: HEPATITIS C
     Dosage: 1.0 G *QD ORAL
     Route: 048
     Dates: start: 20020115, end: 20040419

REACTIONS (16)
  - ABDOMINAL PAIN [None]
  - CARDIAC MURMUR [None]
  - CHILLS [None]
  - COUGH [None]
  - DYSARTHRIA [None]
  - HAEMATURIA [None]
  - HEPATIC NECROSIS [None]
  - HEPATITIS [None]
  - HEPATOMEGALY [None]
  - HYPOAESTHESIA [None]
  - MYALGIA [None]
  - NAUSEA [None]
  - PYREXIA [None]
  - SCLERAL DISCOLOURATION [None]
  - TENDERNESS [None]
  - THROMBOTIC THROMBOCYTOPENIC PURPURA [None]
